FAERS Safety Report 18794071 (Version 6)
Quarter: 2022Q1

REPORT INFORMATION
  Report Type: Spontaneous
  Country: IN (occurrence: IN)
  Receive Date: 20210127
  Receipt Date: 20220201
  Transmission Date: 20220423
  Serious: Yes (Other)
  Sender: FDA-Public Use
  Company Number: IN-PFIZER INC-2018144977

PATIENT
  Age: 58 Year
  Sex: Male

DRUGS (8)
  1. SUTENT [Suspect]
     Active Substance: SUNITINIB MALATE
     Indication: Metastatic renal cell carcinoma
     Dosage: 50 MG, 1X/DAY
     Route: 048
     Dates: start: 20131019
  2. SUTENT [Suspect]
     Active Substance: SUNITINIB MALATE
     Indication: Gastrointestinal stromal tumour
     Dosage: 37.5 MG, CYCLIC (ONCE DAILY FOR 2 WEEKS ON AND 1 WEEK OFF)
     Route: 048
     Dates: start: 20180330
  3. SUTENT [Suspect]
     Active Substance: SUNITINIB MALATE
     Dosage: UNK
     Route: 048
     Dates: start: 201804
  4. SUTENT [Suspect]
     Active Substance: SUNITINIB MALATE
     Dosage: UNK
     Dates: end: 20210528
  5. SUTENT [Suspect]
     Active Substance: SUNITINIB MALATE
     Dosage: 37.5 MG, CYCLIC (1OD FOR 2 WEEKS ON 1 WEEK OFF)
  6. FENTANYL [Concomitant]
     Active Substance: FENTANYL
     Dosage: 50 UG
  7. ZOLEDRONIC [Concomitant]
     Active Substance: ZOLEDRONIC ACID
     Dosage: 3 MG
  8. DENOSUMAB [Concomitant]
     Active Substance: DENOSUMAB

REACTIONS (23)
  - Hypothyroidism [Unknown]
  - Myelopathy [Unknown]
  - Anal abscess [Unknown]
  - Neoplasm progression [Unknown]
  - Skin fissures [Not Recovered/Not Resolved]
  - Diarrhoea [Recovering/Resolving]
  - Asthenia [Unknown]
  - Back pain [Unknown]
  - Blood creatinine increased [Unknown]
  - Hypotension [Recovering/Resolving]
  - Bone pain [Unknown]
  - Platelet count decreased [Unknown]
  - Skin ulcer [Unknown]
  - Ageusia [Unknown]
  - Pruritus [Unknown]
  - Limb discomfort [Unknown]
  - Blister [Unknown]
  - White blood cell count decreased [Unknown]
  - Vomiting [Unknown]
  - Dyspepsia [Unknown]
  - Stomatitis [Unknown]
  - Myopathy [Unknown]
  - Constipation [Unknown]

NARRATIVE: CASE EVENT DATE: 20180101
